FAERS Safety Report 9367054 (Version 1)
Quarter: 2013Q2

REPORT INFORMATION
  Report Type: Spontaneous
  Country: IN (occurrence: IN)
  Receive Date: 20130625
  Receipt Date: 20130625
  Transmission Date: 20140414
  Serious: Yes (Other)
  Sender: FDA-Public Use
  Company Number: IN-BAXTER-2013BAX023596

PATIENT
  Age: 54 Year
  Sex: Male

DRUGS (2)
  1. DIANEAL PD-2 PERITONEAL DIALISIS SOLUTION ULTRABAG WITH 2.5% DEXTROSE [Suspect]
     Indication: PERITONEAL DIALYSIS
     Route: 033
  2. EXTRANEAL PERITONEAL DALYSIS SOLUTION WITH ICODEXTRIN 7.5% [Suspect]
     Indication: PERITONEAL DIALYSIS
     Route: 033

REACTIONS (1)
  - Mycobacterial peritonitis [Recovering/Resolving]
